FAERS Safety Report 11151723 (Version 3)
Quarter: 2015Q2

REPORT INFORMATION
  Report Type: Report from Study
  Country: TN (occurrence: TN)
  Receive Date: 20150601
  Receipt Date: 20150603
  Transmission Date: 20150821
  Serious: Yes (Death)
  Sender: FDA-Public Use
  Company Number: TN-SA-2015SA072808

PATIENT
  Age: 75 Year
  Sex: Female

DRUGS (4)
  1. ATOR [Concomitant]
     Active Substance: ATORVASTATIN CALCIUM
     Route: 048
  2. ASPEGIC [Concomitant]
     Active Substance: ASPIRIN DL-LYSINE
     Route: 048
  3. LOPRIL [Concomitant]
     Active Substance: LISINOPRIL
     Route: 048
  4. PLAVIX [Suspect]
     Active Substance: CLOPIDOGREL BISULFATE
     Indication: MYOCARDIAL INFARCTION
     Route: 048
     Dates: start: 20140909, end: 20141227

REACTIONS (2)
  - Aortic dissection [Fatal]
  - General physical health deterioration [Fatal]

NARRATIVE: CASE EVENT DATE: 20141212
